FAERS Safety Report 7396287-6 (Version None)
Quarter: 2011Q2

REPORT INFORMATION
  Report Type: 
  Country: None (occurrence: None)
  Receive Date: 20110406
  Receipt Date: 20110310
  Transmission Date: 20111010
  Serious: No
  Sender: FDA-Public Use
  Company Number: US-B.I. PHARMACEUTICALS,INC./RIDGEFIELD-2011-BP-07665BP

PATIENT
  Age: 78 Year
  Sex: Male

DRUGS (4)
  1. VITAMIN E [Concomitant]
     Indication: VITAMIN SUPPLEMENTATION
  2. BYSTOLIC [Concomitant]
     Indication: HEART RATE IRREGULAR
  3. PRAVASTATIN [Concomitant]
     Indication: BLOOD CHOLESTEROL INCREASED
  4. PRADAXA [Suspect]
     Indication: ATRIAL FIBRILLATION
     Dosage: 300 MG
     Route: 048
     Dates: start: 20110101

REACTIONS (3)
  - FATIGUE [None]
  - DIARRHOEA [None]
  - ARTHRALGIA [None]
